FAERS Safety Report 8447534-0 (Version None)
Quarter: 2012Q2

REPORT INFORMATION
  Report Type: 
  Country: None (occurrence: None)
  Receive Date: 20120619
  Receipt Date: 20120612
  Transmission Date: 20120825
  Serious: Yes (Other)
  Sender: FDA-Public Use
  Company Number: FR-ASTELLAS-2012EU001495

PATIENT
  Sex: Female
  Weight: 93 kg

DRUGS (4)
  1. ESCITALOPRAM [Concomitant]
     Indication: PHOBIA
     Dosage: 2 DF, UNKNOWN/D
     Route: 048
  2. PRAZEPAM [Concomitant]
     Indication: PHOBIA
     Dosage: UNK
     Route: 048
  3. VESICARE [Suspect]
     Indication: HYPERTONIC BLADDER
     Dosage: 10 MG, UNKNOWN/D
     Route: 048
     Dates: start: 20120222, end: 20120224
  4. TERCIAN [Concomitant]
     Indication: PHOBIA
     Dosage: 2 DF, UNKNOWN/D
     Route: 048

REACTIONS (4)
  - CONFUSIONAL STATE [None]
  - MUSCULAR WEAKNESS [None]
  - HALLUCINATION, VISUAL [None]
  - FALL [None]
